FAERS Safety Report 9997967 (Version 4)
Quarter: 2014Q2

REPORT INFORMATION
  Report Type: Spontaneous
  Country: US (occurrence: US)
  Receive Date: 20140311
  Receipt Date: 20140626
  Transmission Date: 20141212
  Serious: Yes (Other)
  Sender: FDA-Public Use
  Company Number: US-PFIZER INC-2014070652

PATIENT
  Age: 58 Year
  Sex: Female
  Weight: 51.7 kg

DRUGS (13)
  1. EFFEXOR XR [Suspect]
     Indication: DEPRESSION
     Dosage: 150 MG, DAILY
     Route: 048
  2. EFFEXOR XR [Suspect]
     Dosage: 150 MG, DAILY
     Dates: start: 20121204
  3. EFFEXOR XR [Suspect]
     Dosage: 150 MG, DAILY
     Route: 048
     Dates: start: 20131112
  4. TOPAMAX [Concomitant]
     Indication: EPILEPSY
     Dosage: 200 MG, 2X/DAY
     Route: 048
  5. PREVACID [Concomitant]
     Dosage: 30 MG, 1X/DAY
     Route: 048
     Dates: start: 20131104
  6. CLONAZEPAM [Concomitant]
     Dosage: 0.5 MG, 2X/DAY
     Route: 048
     Dates: start: 20120131
  7. CLONAZEPAM [Concomitant]
     Dosage: 0.5 MG, 2X/DAY
     Route: 048
     Dates: start: 20120131
  8. METHENAMINE [Concomitant]
     Dosage: 1 G, 2X/DAY
     Route: 048
  9. VITAMIN D3 [Concomitant]
     Dosage: 2000 IU, UNK
  10. ASCORBIC ACID/BIOFLAVONOIDS [Concomitant]
     Dosage: 1000 MG, UNK
  11. BACTROBAN [Concomitant]
     Dosage: 2 %, APPLY
     Dates: start: 20110622
  12. VENTOLIN HFA [Concomitant]
     Dosage: 0.09 MG, 2 PUFF EVERY 4-6 HOURS AS NEEDED
     Route: 055
     Dates: start: 20130614
  13. LANSOPRAZOL MYLAN [Concomitant]
     Dosage: 30 MG, DAILY
     Route: 048
     Dates: start: 20131104

REACTIONS (28)
  - Suicidal ideation [Unknown]
  - Loss of consciousness [Unknown]
  - Syncope [Unknown]
  - Depression [Unknown]
  - Atrial tachycardia [Unknown]
  - Cardiac murmur [Unknown]
  - Heart rate increased [Unknown]
  - Asthenia [Unknown]
  - Dizziness [Unknown]
  - Fall [Unknown]
  - Balance disorder [Unknown]
  - Feeling abnormal [Unknown]
  - Decreased appetite [Unknown]
  - Nausea [Unknown]
  - Depression [Unknown]
  - Urinary retention [Unknown]
  - Tearfulness [Unknown]
  - Headache [Unknown]
  - Abdominal discomfort [Unknown]
  - Dysuria [Unknown]
  - Somnolence [Unknown]
  - Fatigue [Unknown]
  - Chills [Unknown]
  - Night sweats [Unknown]
  - Weight decreased [Unknown]
  - Decreased interest [Unknown]
  - Gait disturbance [Unknown]
  - Urinary incontinence [Unknown]
